FAERS Safety Report 12851577 (Version 2)
Quarter: 2016Q4

REPORT INFORMATION
  Report Type: Spontaneous
  Country: CY (occurrence: CY)
  Receive Date: 20161016
  Receipt Date: 20161025
  Transmission Date: 20170207
  Serious: Yes (Other)
  Sender: FDA-Public Use
  Company Number: CY-BAXTER-2016BAX052675

PATIENT
  Age: 40 Year
  Sex: Female

DRUGS (1)
  1. SUPRANE [Suspect]
     Active Substance: DESFLURANE
     Indication: UMBILICAL HERNIA REPAIR
     Route: 055
     Dates: start: 20161003, end: 20161003

REACTIONS (4)
  - Incorrect dose administered by device [Recovered/Resolved]
  - Heart rate increased [Recovered/Resolved]
  - Unwanted awareness during anaesthesia [Recovered/Resolved]
  - Blood pressure fluctuation [Recovered/Resolved]

NARRATIVE: CASE EVENT DATE: 20161003
